FAERS Safety Report 5379575-4 (Version None)
Quarter: 2007Q3

REPORT INFORMATION
  Report Type: 
  Country: None (occurrence: None)
  Receive Date: 20070703
  Receipt Date: 20070521
  Transmission Date: 20080115
  Serious: Yes (Death, Other)
  Sender: FDA-Public Use
  Company Number: 013585

PATIENT
  Age: 40 Year
  Sex: Female

DRUGS (2)
  1. CENESTIN [Suspect]
     Indication: OESTRADIOL DECREASED
     Dosage: 0.625 MG
  2. MEDROXYPROGESTERONE [Suspect]
     Indication: OESTRADIOL DECREASED

REACTIONS (5)
  - ENDOMETRIAL CANCER METASTATIC [None]
  - LIPID METABOLISM DISORDER [None]
  - METASTASES TO ABDOMINAL CAVITY [None]
  - METASTASES TO LIVER [None]
  - METASTASES TO LYMPH NODES [None]
